FAERS Safety Report 9782296 (Version 2)
Quarter: 2013Q4

REPORT INFORMATION
  Report Type: Report from Study
  Country: CA (occurrence: CA)
  Receive Date: 20131226
  Receipt Date: 20131230
  Transmission Date: 20140711
  Serious: Yes (Other)
  Sender: FDA-Public Use
  Company Number: CA-JNJFOC-20131215080

PATIENT
  Sex: Female
  Weight: 95 kg

DRUGS (2)
  1. REMICADE [Suspect]
     Indication: PSORIATIC ARTHROPATHY
     Route: 042
     Dates: start: 20130906
  2. REMICADE [Suspect]
     Indication: PSORIATIC ARTHROPATHY
     Dosage: MULTIPLE TREATMENTS
     Route: 042

REACTIONS (1)
  - Cholelithiasis [Unknown]
